FAERS Safety Report 19399395 (Version 2)
Quarter: 2021Q2

REPORT INFORMATION
  Report Type: Spontaneous
  Country: US (occurrence: US)
  Receive Date: 20210610
  Receipt Date: 20210616
  Transmission Date: 20210717
  Serious: No
  Sender: FDA-Public Use
  Company Number: US-AMGEN-USASP2021085337

PATIENT
  Age: 73 Year
  Sex: Female

DRUGS (3)
  1. ACTONEL [Concomitant]
     Active Substance: RISEDRONATE SODIUM
     Dosage: UNK
  2. PROLIA [Suspect]
     Active Substance: DENOSUMAB
     Indication: OSTEOPOROSIS POSTMENOPAUSAL
     Dosage: UNK
     Route: 065
     Dates: start: 20210526
  3. COVID?19 VACCINE [Concomitant]
     Dosage: UNK
     Dates: start: 202102

REACTIONS (5)
  - Surgery [Unknown]
  - Dizziness [Unknown]
  - Chills [Recovered/Resolved]
  - Pain [Recovered/Resolved]
  - Pain in extremity [Unknown]

NARRATIVE: CASE EVENT DATE: 20210528
